FAERS Safety Report 9281041 (Version 2)
Quarter: 2013Q4

REPORT INFORMATION
  Report Type: Spontaneous
  Country: CH (occurrence: CH)
  Receive Date: 20130509
  Receipt Date: 20131107
  Transmission Date: 20140711
  Serious: Yes (Other)
  Sender: FDA-Public Use
  Company Number: CH-GLAXOSMITHKLINE-B0890192A

PATIENT
  Age: 21 Year
  Sex: 0

DRUGS (5)
  1. RETIGABINE [Suspect]
     Indication: TEMPORAL LOBE EPILEPSY
     Dosage: 300MG PER DAY
     Route: 065
     Dates: start: 201203, end: 20121106
  2. LAMOTRIGINE [Concomitant]
     Indication: TEMPORAL LOBE EPILEPSY
     Dosage: 550MG PER DAY
  3. PREGABALIN [Concomitant]
     Indication: TEMPORAL LOBE EPILEPSY
     Dosage: 600MG PER DAY
  4. CLOBAZAM [Concomitant]
     Indication: TEMPORAL LOBE EPILEPSY
     Dosage: 15MG PER DAY
  5. SERTRALINE [Concomitant]
     Indication: TEMPORAL LOBE EPILEPSY
     Dosage: 50MG PER DAY

REACTIONS (14)
  - Encephalopathy [Recovered/Resolved]
  - Headache [Unknown]
  - Dizziness [Unknown]
  - Dysarthria [Unknown]
  - Cognitive disorder [Unknown]
  - Confusional state [Unknown]
  - Nausea [Unknown]
  - Vomiting [Unknown]
  - Hepatic enzyme increased [Unknown]
  - Hepatic atrophy [Unknown]
  - Hepatitis E [Unknown]
  - Blood immunoglobulin M increased [Unknown]
  - Hepatic enzyme increased [Unknown]
  - Drug-induced liver injury [Recovered/Resolved]
